FAERS Safety Report 22180665 (Version 1)
Quarter: 2023Q2

REPORT INFORMATION
  Report Type: Spontaneous
  Country: US (occurrence: None)
  Receive Date: 20230405
  Receipt Date: 20230405
  Transmission Date: 20230721
  Serious: Yes (Disabling)
  Sender: FDA-Public Use
  Company Number: None

PATIENT
  Age: 19 Year
  Sex: Male
  Weight: 90 kg

DRUGS (1)
  1. AMOXICILLAN [Suspect]
     Active Substance: AMOXICILLIN

REACTIONS (3)
  - Gluten sensitivity [None]
  - Eczema [None]
  - Cough [None]

NARRATIVE: CASE EVENT DATE: 20230315
